FAERS Safety Report 5779291-0 (Version None)
Quarter: 2008Q2

REPORT INFORMATION
  Report Type: 
  Country: None (occurrence: None)
  Receive Date: 20080601
  Receipt Date: 20080104
  Transmission Date: 20081010
  Serious: No
  Sender: FDA-Public Use
  Company Number: US200801000982

PATIENT
  Age: 45 Year
  Sex: Male

DRUGS (6)
  1. BYETTA [Suspect]
     Indication: TYPE 2 DIABETES MELLITUS
     Dosage: 5 UG, 2/D, SUBCUTANEOUS; 5 UG, 3/D, SUBCUTANEOUS; 10 UG, 3/D, SUBCUTANEOUS
     Route: 058
     Dates: start: 20071201, end: 20071201
  2. BYETTA [Suspect]
     Indication: TYPE 2 DIABETES MELLITUS
     Dosage: 5 UG, 2/D, SUBCUTANEOUS; 5 UG, 3/D, SUBCUTANEOUS; 10 UG, 3/D, SUBCUTANEOUS
     Route: 058
     Dates: start: 20071201, end: 20071201
  3. BYETTA [Suspect]
     Indication: TYPE 2 DIABETES MELLITUS
     Dosage: 5 UG, 2/D, SUBCUTANEOUS; 5 UG, 3/D, SUBCUTANEOUS; 10 UG, 3/D, SUBCUTANEOUS
     Route: 058
     Dates: start: 20071214, end: 20071201
  4. EXENATIDE 5MCG PEN, DISPOSABLE DEVICE [Concomitant]
  5. XANAX [Concomitant]
  6. PRANDIN /USA/ (REPAGLINIDE) [Concomitant]

REACTIONS (3)
  - INCORRECT DOSE ADMINISTERED [None]
  - INTENTIONAL OVERDOSE [None]
  - RASH [None]
